FAERS Safety Report 11788254 (Version 1)
Quarter: 2015Q4

REPORT INFORMATION
  Report Type: Spontaneous
  Country: JP (occurrence: JP)
  Receive Date: 20151201
  Receipt Date: 20151201
  Transmission Date: 20160305
  Serious: Yes (Other)
  Sender: FDA-Public Use
  Company Number: JP-009507513-1511JPN008643

PATIENT
  Age: 65 Year
  Sex: Female
  Weight: 54 kg

DRUGS (13)
  1. ALBUMIN HUMAN [Concomitant]
     Active Substance: ALBUMIN (HUMAN)
     Indication: HYPOALBUMINAEMIA
     Dosage: 25 G, QD
     Route: 051
     Dates: start: 20150308, end: 20150312
  2. NOREPINEPHRINE [Concomitant]
     Active Substance: NOREPINEPHRINE\NOREPINEPHRINE BITARTRATE
     Indication: BLOOD PRESSURE DECREASED
     Dosage: 0.1 GAMMA, AS OCCASION ARISES
     Route: 051
     Dates: start: 20150307, end: 20150313
  3. HANP [Concomitant]
     Active Substance: CARPERITIDE
     Indication: CARDIAC FAILURE
     Dosage: 0.1 GAMMA, QD
     Route: 051
     Dates: start: 20150307, end: 20150312
  4. LANSOPRAZOLE. [Concomitant]
     Active Substance: LANSOPRAZOLE
     Indication: GASTRIC ULCER
     Dosage: 15 MG, QD
     Route: 048
     Dates: start: 20150302, end: 20150422
  5. CANCIDAS [Suspect]
     Active Substance: CASPOFUNGIN ACETATE
     Dosage: 35 MG, QD
     Route: 041
     Dates: start: 20150311, end: 20150316
  6. CANCIDAS [Suspect]
     Active Substance: CASPOFUNGIN ACETATE
     Indication: FEBRILE NEUTROPENIA
     Dosage: 70 MG, QD
     Route: 041
     Dates: start: 20150310, end: 20150310
  7. MIDAZOLAM [Concomitant]
     Active Substance: MIDAZOLAM\MIDAZOLAM HYDROCHLORIDE
     Indication: SEDATION
     Dosage: 50 MG, QD
     Route: 051
     Dates: start: 20150311, end: 20150314
  8. VANCOMYCIN [Concomitant]
     Active Substance: VANCOMYCIN
     Indication: PNEUMONIA
     Dosage: 1 G, QD
     Route: 051
     Dates: start: 20150221, end: 20150318
  9. PRECEDEX [Concomitant]
     Active Substance: DEXMEDETOMIDINE HYDROCHLORIDE
     Indication: SEDATION
     Dosage: 400 MICROGRAM, QD
     Route: 051
     Dates: start: 20150225, end: 20150311
  10. HUMULIN NOS [Concomitant]
     Active Substance: INSULIN HUMAN
     Indication: HYPERGLYCAEMIA
     Dosage: 0.5 ML, AS OCCASION ARISES
     Route: 051
     Dates: start: 20150226, end: 20150319
  11. MEROPENEM. [Concomitant]
     Active Substance: MEROPENEM
     Indication: PNEUMONIA
     Dosage: 1 G, BID
     Route: 051
     Dates: start: 20150228, end: 20150316
  12. ARGATROBAN. [Concomitant]
     Active Substance: ARGATROBAN
     Indication: EXTRACORPOREAL CIRCULATION
     Dosage: 24 MG, QD
     Route: 051
     Dates: start: 20150307, end: 20150407
  13. ELASPOL [Concomitant]
     Active Substance: SIVELESTAT SODIUM
     Indication: ACUTE RESPIRATORY DISTRESS SYNDROME
     Dosage: 300 MG, QD
     Route: 051
     Dates: start: 20150225, end: 20150313

REACTIONS (2)
  - Hepatic function abnormal [Recovered/Resolved]
  - Rhabdomyolysis [Recovered/Resolved]

NARRATIVE: CASE EVENT DATE: 20150311
